FAERS Safety Report 5524450-5 (Version None)
Quarter: 2007Q4

REPORT INFORMATION
  Report Type: 
  Country: None (occurrence: None)
  Receive Date: 20071122
  Receipt Date: 20071114
  Transmission Date: 20080405
  Serious: Yes (Other)
  Sender: FDA-Public Use
  Company Number: PHBS2007BR17815

PATIENT
  Age: 21 Year
  Sex: Female
  Weight: 100 kg

DRUGS (1)
  1. VISKEN [Suspect]
     Indication: HYPERTENSION
     Dosage: 5 MG, Q12H
     Route: 048
     Dates: start: 20071022

REACTIONS (7)
  - CAESAREAN SECTION [None]
  - DRUG EXPOSURE DURING PREGNANCY [None]
  - FEELING ABNORMAL [None]
  - HYPERTENSION [None]
  - TACHYCARDIA [None]
  - TREMOR [None]
  - VOMITING [None]
